FAERS Safety Report 9234554 (Version 3)
Quarter: 2013Q2

REPORT INFORMATION
  Report Type: Report from Study
  Country: US (occurrence: US)
  Receive Date: 20130416
  Receipt Date: 20130515
  Transmission Date: 20140414
  Serious: Yes (Hospitalization)
  Sender: FDA-Public Use
  Company Number: US-FRI-1000044179

PATIENT
  Age: 70 Year
  Sex: Female
  Weight: 65 kg

DRUGS (20)
  1. CEFTAROLINE FOSAMIL (OPEN-LABEL) [Suspect]
     Indication: STAPHYLOCOCCAL INFECTION
     Dosage: 1800 MG
     Route: 042
     Dates: start: 20130312, end: 20130320
  2. TEFLARO [Suspect]
     Indication: STAPHYLOCOCCAL INFECTION
     Dosage: 1800 MG
     Route: 042
     Dates: start: 20130320, end: 20130408
  3. EFFEXOR XR [Concomitant]
     Indication: DEPRESSION
     Dosage: 225 MG
     Route: 048
     Dates: start: 2010, end: 20130409
  4. FERREX [Concomitant]
     Indication: SUPPLEMENTATION THERAPY
     Dosage: 150 MG
     Route: 048
     Dates: start: 1985
  5. ALBUTEROL [Concomitant]
     Indication: ASTHMA
     Route: 055
     Dates: start: 2010
  6. ASPIRIN [Concomitant]
     Indication: PAIN
     Dosage: 81 MG
     Route: 048
     Dates: start: 2011
  7. CELECOXIB [Concomitant]
     Indication: ARTHRALGIA
     Dosage: 200 MG
     Route: 048
     Dates: start: 2003
  8. LUTEIN [Concomitant]
     Indication: SUPPLEMENTATION THERAPY
     Dosage: 25 MG
     Route: 048
     Dates: start: 2010
  9. CHLORTHALIDONE [Concomitant]
     Indication: HYPERTENSION
     Dosage: 12.5 MG
     Route: 048
     Dates: start: 2003
  10. ATENOLOL [Concomitant]
     Indication: HYPERTENSION
     Dosage: 25 MG
     Route: 048
     Dates: start: 1995
  11. POTASSIUM CHLORIDE [Concomitant]
     Indication: HYPOKALAEMIA
     Dosage: 20 MEQ
     Route: 048
     Dates: start: 2003
  12. MULTIPLE VITAMINS-MINERALS (EYE VITAMINS) [Concomitant]
     Indication: SUPPLEMENTATION THERAPY
     Route: 048
     Dates: start: 2008
  13. GLUCOSAMINE CHONDROITIN ADVANCED [Concomitant]
     Indication: SUPPLEMENTATION THERAPY
     Route: 048
     Dates: end: 201304
  14. NASONEX [Concomitant]
     Indication: ASTHMA
     Dosage: 2 SPRAYS
     Route: 055
     Dates: start: 2010
  15. CHLORZOXAZONE [Concomitant]
     Indication: BACK PAIN
     Route: 048
     Dates: start: 1997
  16. FEXOFENADINE [Concomitant]
     Indication: RHINITIS ALLERGIC
     Dosage: 180 MG
     Route: 048
     Dates: start: 2007
  17. OMEGA 3 [Concomitant]
     Indication: SUPPLEMENTATION THERAPY
     Dosage: 1000 MG
     Route: 048
     Dates: start: 2008
  18. COQ [Concomitant]
     Indication: SUPPLEMENTATION THERAPY
     Dosage: 10 MG
     Route: 048
     Dates: start: 2010
  19. CENTRUM [Concomitant]
     Indication: SUPPLEMENTATION THERAPY
     Route: 048
     Dates: start: 1998
  20. SENOKOT [Concomitant]
     Route: 048

REACTIONS (3)
  - Neutropenia [Recovered/Resolved]
  - Hypokalaemia [Recovered/Resolved]
  - Hypersensitivity [Unknown]
